FAERS Safety Report 23391898 (Version 1)
Quarter: 2024Q1

REPORT INFORMATION
  Report Type: Spontaneous
  Country: US (occurrence: None)
  Receive Date: 20240110
  Receipt Date: 20240110
  Transmission Date: 20240410
  Serious: Yes (Life-Threatening)
  Sender: FDA-Public Use
  Company Number: None

PATIENT
  Age: 31 Year
  Sex: Male
  Weight: 96.75 kg

DRUGS (1)
  1. SINGULAIR [Suspect]
     Active Substance: MONTELUKAST SODIUM
     Dates: start: 20140101, end: 20220202

REACTIONS (2)
  - Suicidal ideation [None]
  - Withdrawal syndrome [None]

NARRATIVE: CASE EVENT DATE: 20200901
